FAERS Safety Report 7810238-9 (Version None)
Quarter: 2011Q4

REPORT INFORMATION
  Report Type: 
  Country: None (occurrence: None)
  Receive Date: 20111012
  Receipt Date: 20111007
  Transmission Date: 20120403
  Serious: Yes (Hospitalization, Other)
  Sender: FDA-Public Use
  Company Number: CA-PFIZER INC-2011240114

PATIENT
  Sex: Female

DRUGS (1)
  1. VARENICLINE TARTRATE [Suspect]
     Indication: RESTLESS LEGS SYNDROME
     Dosage: UNK

REACTIONS (3)
  - DYSPNOEA [None]
  - HYPONATRAEMIA [None]
  - BRADYCARDIA [None]
